FAERS Safety Report 7285837-6 (Version None)
Quarter: 2011Q1

REPORT INFORMATION
  Report Type: 
  Country: None (occurrence: None)
  Receive Date: 20110125
  Receipt Date: 20110114
  Transmission Date: 20110831
  Serious: Yes (Other)
  Sender: FDA-Public Use
  Company Number: 2010-3590

PATIENT
  Age: 50 Year
  Sex: Female
  Weight: 66 kg

DRUGS (6)
  1. AVAGE (TAZAROTENE) [Concomitant]
  2. ALCOHOL PREP (ETHANOL) [Concomitant]
  3. DYSPORT [Suspect]
     Indication: OFF LABEL USE
     Dosage: 148 UNITS (148 UNITS,SNGLE CYCLE),PARENTERAL
     Route: 051
     Dates: start: 20101015, end: 20101015
  4. DYSPORT [Suspect]
     Indication: SKIN WRINKLING
     Dosage: 148 UNITS (148 UNITS,SNGLE CYCLE),PARENTERAL
     Route: 051
     Dates: start: 20101015, end: 20101015
  5. DYSPORT [Suspect]
     Indication: SKIN COSMETIC PROCEDURE
     Dosage: 148 UNITS (148 UNITS,SNGLE CYCLE),PARENTERAL
     Route: 051
     Dates: start: 20101015, end: 20101015
  6. MULTIVITAMIN (MULTIVITAMIN /00831701/) [Concomitant]

REACTIONS (4)
  - RASH ERYTHEMATOUS [None]
  - RASH MACULAR [None]
  - INJECTION SITE RASH [None]
  - RASH PRURITIC [None]
